FAERS Safety Report 8584676-3 (Version None)
Quarter: 2012Q3

REPORT INFORMATION
  Report Type: 
  Country: None (occurrence: None)
  Receive Date: 20120810
  Receipt Date: 20070527
  Transmission Date: 20120928
  Serious: Yes (Other)
  Sender: FDA-Public Use
  Company Number: CO-PFIZER INC-2012190181

PATIENT
  Age: 74 Year
  Sex: Male

DRUGS (5)
  1. NORVASC [Suspect]
     Indication: HYPERTENSION
     Dosage: 5 MG, ONCE DAILY
  2. LIPITOR [Suspect]
     Indication: DYSLIPIDAEMIA
     Dosage: 10 MG, ONCE DAILY
  3. HYDROCHLOROTHIAZIDE [Concomitant]
     Dosage: 25 MG, ONCE DAILY
  4. NORVASC [Suspect]
     Dosage: 10 MG,ONCE DAILY
  5. ACETYLSALICYLIC ACID [Concomitant]
     Dosage: 100 MG, ONCE DAILY

REACTIONS (2)
  - ARRHYTHMIA [None]
  - ATRIAL FIBRILLATION [None]
